FAERS Safety Report 10408567 (Version 1)
Quarter: 2014Q3

REPORT INFORMATION
  Report Type: Report from Study
  Country: MX (occurrence: MX)
  Receive Date: 20140826
  Receipt Date: 20140826
  Transmission Date: 20150326
  Serious: Yes (Other)
  Sender: FDA-Public Use
  Company Number: PHHY2014MX101858

PATIENT
  Age: 76 Year
  Sex: Male

DRUGS (3)
  1. PRAVASTATINA [Concomitant]
     Dosage: UNK UKN, UNK
  2. SOMAZINA [Concomitant]
     Dosage: UNK UKN, UNK
  3. ONBREZ [Suspect]
     Active Substance: INDACATEROL
     Indication: CHRONIC OBSTRUCTIVE PULMONARY DISEASE
     Dosage: 150 UG, DAILY
     Route: 048
     Dates: start: 201404, end: 20140727

REACTIONS (2)
  - Cerebral infarction [Not Recovered/Not Resolved]
  - Incorrect route of drug administration [Not Recovered/Not Resolved]

NARRATIVE: CASE EVENT DATE: 201404
